FAERS Safety Report 7163716-2 (Version None)
Quarter: 2010Q4

REPORT INFORMATION
  Report Type: 
  Country: None (occurrence: None)
  Receive Date: 20101215
  Receipt Date: 20100602
  Transmission Date: 20110411
  Serious: Yes (Other)
  Sender: FDA-Public Use
  Company Number: GB-PFIZER INC-2010049440

PATIENT
  Age: 22 Year
  Sex: Male

DRUGS (4)
  1. LYRICA [Suspect]
     Indication: ANXIETY
     Dosage: 75 MG, UNK
     Dates: end: 20100401
  2. LYRICA [Suspect]
     Dosage: 150 MG, UNK
     Route: 048
     Dates: start: 20100412
  3. MIRTAZAPINE [Concomitant]
     Indication: ANXIETY
     Dosage: 15 MG, 1X/DAY
     Route: 048
     Dates: start: 20100319
  4. BUSPIRONE [Concomitant]
     Dosage: UNK

REACTIONS (11)
  - ABNORMAL DREAMS [None]
  - CHEST DISCOMFORT [None]
  - CRYING [None]
  - DIARRHOEA [None]
  - DYSPNOEA [None]
  - INSOMNIA [None]
  - IRRITABILITY [None]
  - NAUSEA [None]
  - PALPITATIONS [None]
  - PANIC REACTION [None]
  - SUICIDAL IDEATION [None]
